FAERS Safety Report 4355859-3 (Version None)
Quarter: 2004Q2

REPORT INFORMATION
  Report Type: 
  Country: None (occurrence: None)
  Receive Date: 20040507
  Receipt Date: 20040507
  Transmission Date: 20050107
  Serious: Yes (Hospitalization)
  Sender: FDA-Public Use
  Company Number: None

PATIENT
  Age: 45 Year
  Sex: Female
  Weight: 90.7194 kg

DRUGS (1)
  1. SURGILUBE [Suspect]
     Indication: SMEAR CERVIX
     Dosage: VAGINAL
     Route: 067

REACTIONS (6)
  - DERMATITIS CONTACT [None]
  - HYPERSENSITIVITY [None]
  - SKIN DESQUAMATION [None]
  - VAGINAL DISORDER [None]
  - VAGINAL MUCOSAL BLISTERING [None]
  - VAGINAL MYCOSIS [None]
